FAERS Safety Report 21219314 (Version 7)
Quarter: 2023Q1

REPORT INFORMATION
  Report Type: Report from Study
  Country: FR (occurrence: FR)
  Receive Date: 20220817
  Receipt Date: 20230116
  Transmission Date: 20230418
  Serious: Yes (Hospitalization)
  Sender: FDA-Public Use
  Company Number: FR-NOVARTISPH-NVSC2022FR017039

PATIENT
  Age: 3 Year
  Sex: Male
  Weight: 17.1 kg

DRUGS (4)
  1. ONASEMNOGENE ABEPARVOVEC [Suspect]
     Active Substance: ONASEMNOGENE ABEPARVOVEC
     Indication: Spinal muscular atrophy
     Dosage: 93.5 ML, ONCE/SINGLE
     Route: 042
     Dates: start: 20220118
  2. POLYETHYLENE GLYCOL 4000 [Concomitant]
     Active Substance: POLYETHYLENE GLYCOL 4000
     Indication: Constipation
     Dosage: UNK
     Route: 065
     Dates: start: 201910, end: 202202
  3. CHOLECALCIFEROL [Concomitant]
     Active Substance: CHOLECALCIFEROL
     Indication: Vitamin supplementation
     Dosage: UNK
     Route: 065
     Dates: start: 2019
  4. PREDNISOLONE [Concomitant]
     Active Substance: PREDNISOLONE
     Indication: General physical condition
     Dosage: UNK
     Route: 065
     Dates: start: 20220117, end: 20220121

REACTIONS (1)
  - Bicytopenia [Recovered/Resolved]

NARRATIVE: CASE EVENT DATE: 20220121
